FAERS Safety Report 12423015 (Version 1)
Quarter: 2016Q2

REPORT INFORMATION
  Report Type: Spontaneous
  Country: US (occurrence: US)
  Receive Date: 20160601
  Receipt Date: 20160601
  Transmission Date: 20160815
  Serious: No
  Sender: FDA-Public Use
  Company Number: US-PFIZER INC-2016278540

PATIENT
  Age: 48 Year
  Sex: Female

DRUGS (5)
  1. VIVELLE-DOT [Concomitant]
     Active Substance: ESTRADIOL
  2. FOLIC ACID. [Concomitant]
     Active Substance: FOLIC ACID
  3. XELJANZ [Suspect]
     Active Substance: TOFACITINIB CITRATE
     Indication: RHEUMATOID ARTHRITIS
     Dosage: 5 MG, TWICE A DAY AFTER MEAL
     Route: 048
     Dates: start: 2013
  4. LOSARTAN. [Concomitant]
     Active Substance: LOSARTAN
  5. METHOTREXATE [Concomitant]
     Active Substance: METHOTREXATE

REACTIONS (1)
  - Sinusitis [Unknown]
